FAERS Safety Report 4432900-0 (Version None)
Quarter: 2004Q3

REPORT INFORMATION
  Report Type: 
  Country: None (occurrence: None)
  Receive Date: 20040823
  Receipt Date: 20040809
  Transmission Date: 20050211
  Serious: Yes (Hospitalization)
  Sender: FDA-Public Use
  Company Number: 2004GB01917

PATIENT
  Age: 79 Year
  Sex: Female

DRUGS (5)
  1. ATENOLOL [Suspect]
     Indication: HYPERTENSION
     Dosage: 25 MG DAILY PO
     Route: 048
     Dates: start: 20040628, end: 20040718
  2. AMLODIPINE [Concomitant]
  3. BENDROFLUAZIDE [Concomitant]
  4. ATORVASTATIN [Concomitant]
  5. EPROSARTAN [Concomitant]

REACTIONS (2)
  - CIRCULATORY COLLAPSE [None]
  - HEART RATE DECREASED [None]
